FAERS Safety Report 9155350 (Version 1)
Quarter: 2013Q1

REPORT INFORMATION
  Report Type: Spontaneous
  Country: FR (occurrence: FR)
  Receive Date: 20130311
  Receipt Date: 20130311
  Transmission Date: 20140127
  Serious: Yes (Hospitalization)
  Sender: FDA-Public Use
  Company Number: FR-WATSON-2013-03333

PATIENT
  Age: 39 Year
  Sex: Male

DRUGS (7)
  1. RAPAFLO (WATSON LABORATORIES) [Suspect]
     Indication: NEUROGENIC BLADDER
     Dosage: 8 MG QD
     Route: 048
     Dates: start: 20130107, end: 20130116
  2. RAPAFLO (WATSON LABORATORIES) [Suspect]
     Indication: OFF LABEL USE
     Dosage: 8 MG BID
     Route: 048
     Dates: start: 20130114, end: 20130114
  3. XANAX [Concomitant]
     Indication: PRODUCT USED FOR UNKNOWN INDICATION
     Dosage: 0.25 MG, QID
     Route: 065
     Dates: start: 20130110
  4. DOLIPRANE [Concomitant]
     Indication: PRODUCT USED FOR UNKNOWN INDICATION
     Dosage: 1000 MG, 3 TO 4 G QD
     Route: 065
     Dates: start: 20130116
  5. LYRICA [Concomitant]
     Indication: PRODUCT USED FOR UNKNOWN INDICATION
     Dosage: 50 MG, BID
     Route: 065
     Dates: start: 20130102
  6. ZOPICLONE [Concomitant]
     Indication: PRODUCT USED FOR UNKNOWN INDICATION
     Dosage: 7.5 MG, QPM
     Route: 065
     Dates: start: 20121228
  7. FRAGMINE [Concomitant]
     Indication: PRODUCT USED FOR UNKNOWN INDICATION
     Dosage: 500 IU, DAILY
     Route: 065
     Dates: start: 20121229

REACTIONS (2)
  - Orchitis [Recovered/Resolved]
  - Overdose [Recovered/Resolved]
